FAERS Safety Report 7301163-0 (Version None)
Quarter: 2011Q1

REPORT INFORMATION
  Report Type: 
  Country: None (occurrence: None)
  Receive Date: 20110218
  Receipt Date: 20101129
  Transmission Date: 20110831
  Serious: Yes (Other)
  Sender: FDA-Public Use
  Company Number: US-BAYER-201041851NA

PATIENT
  Weight: 76.644 kg

DRUGS (1)
  1. MIRENA [Suspect]
     Indication: CONTRACEPTION
     Dosage: FREQUENCY: CONTINUOUS
     Route: 015
     Dates: start: 20060309

REACTIONS (5)
  - COMPLICATION OF DEVICE REMOVAL [None]
  - PROCEDURAL PAIN [None]
  - COMPLICATION OF DEVICE INSERTION [None]
  - DEVICE DISLOCATION [None]
  - ABDOMINAL PAIN [None]
